FAERS Safety Report 17332480 (Version 1)
Quarter: 2020Q1

REPORT INFORMATION
  Report Type: Spontaneous
  Country: CA (occurrence: CA)
  Receive Date: 20200127
  Receipt Date: 20200127
  Transmission Date: 20200409
  Serious: Yes (Life-Threatening)
  Sender: FDA-Public Use
  Company Number: CA-009507513-2001CAN008871

PATIENT
  Age: 79 Year
  Sex: Male

DRUGS (1)
  1. JANUMET XR [Suspect]
     Active Substance: METFORMIN HYDROCHLORIDE\SITAGLIPTIN PHOSPHATE
     Indication: DIABETES MELLITUS
     Dosage: FORMULATION: TABLET (EXTENDED RELEASE), 1 DOSAGE FORM, 1 EVERY 1 DAYS
     Route: 048

REACTIONS (2)
  - Product quality issue [Recovered/Resolved]
  - Choking [Recovered/Resolved]
